FAERS Safety Report 12549518 (Version 1)
Quarter: 2016Q3

REPORT INFORMATION
  Report Type: Spontaneous
  Country: US (occurrence: US)
  Receive Date: 20160712
  Receipt Date: 20160712
  Transmission Date: 20161109
  Serious: No
  Sender: FDA-Public Use
  Company Number: US-BAYER-2016-130473

PATIENT
  Age: 65 Year
  Sex: Female
  Weight: 81.63 kg

DRUGS (1)
  1. CLARITIN REDITABS [Suspect]
     Active Substance: LORATADINE
     Indication: MULTIPLE CHEMICAL SENSITIVITY
     Dosage: 1 DF, QD
     Route: 048
     Dates: start: 20160628, end: 20160629

REACTIONS (9)
  - Nasal oedema [Recovered/Resolved]
  - Grip strength decreased [Recovered/Resolved]
  - Eyelid oedema [Recovered/Resolved]
  - Lip swelling [Recovered/Resolved]
  - Limb discomfort [Recovered/Resolved]
  - Eye discharge [Recovered/Resolved]
  - Paraesthesia [Recovered/Resolved]
  - Joint swelling [Recovered/Resolved]
  - Product use issue [None]

NARRATIVE: CASE EVENT DATE: 20160628
